FAERS Safety Report 13832755 (Version 1)
Quarter: 2017Q3

REPORT INFORMATION
  Report Type: Spontaneous
  Country: US (occurrence: US)
  Receive Date: 20170803
  Receipt Date: 20170803
  Transmission Date: 20171127
  Serious: No
  Sender: FDA-Public Use
  Company Number: US-ROCHE-670291

PATIENT
  Age: 67 Year
  Sex: Female
  Weight: 68 kg

DRUGS (1)
  1. BONIVA [Suspect]
     Active Substance: IBANDRONATE SODIUM
     Indication: OSTEOPOROSIS
     Route: 048

REACTIONS (4)
  - Bone pain [Recovering/Resolving]
  - Malaise [Recovering/Resolving]
  - Diarrhoea [Recovering/Resolving]
  - Back pain [Not Recovered/Not Resolved]

NARRATIVE: CASE EVENT DATE: 20091118
